FAERS Safety Report 6085437-X (Version None)
Quarter: 2009Q1

REPORT INFORMATION
  Report Type: 
  Country: None (occurrence: None)
  Receive Date: 20090217
  Receipt Date: 20080611
  Transmission Date: 20090719
  Serious: Yes (Life-Threatening)
  Sender: FDA-Public Use
  Company Number: 08H-163-0314431-00

PATIENT

DRUGS (1)
  1. PRECEDEX [Suspect]
     Indication: DRUG USE FOR UNKNOWN INDICATION
     Dosage: 0.3 MCG/KG/HR, INTRAVENOUS
     Route: 042
     Dates: start: 20080101, end: 20080101

REACTIONS (1)
  - HYPOTENSION [None]
